FAERS Safety Report 12594600 (Version 1)
Quarter: 2016Q3

REPORT INFORMATION
  Report Type: Spontaneous
  Country: US (occurrence: US)
  Receive Date: 20160726
  Receipt Date: 20160726
  Transmission Date: 20161109
  Serious: Yes (Other)
  Sender: FDA-Public Use
  Company Number: US-UNITED THERAPEUTICS-UNT-2015-015134

PATIENT
  Age: 58 Year
  Sex: Male
  Weight: 75.28 kg

DRUGS (2)
  1. REMODULIN [Suspect]
     Active Substance: TREPROSTINIL
     Indication: PULMONARY ARTERIAL HYPERTENSION
     Dosage: 0.07 ?G/KG, CONTINUING
     Route: 058
     Dates: start: 20081027
  2. REVATIO [Concomitant]
     Active Substance: SILDENAFIL CITRATE
     Indication: PRODUCT USED FOR UNKNOWN INDICATION

REACTIONS (4)
  - Malaise [Unknown]
  - Chills [Unknown]
  - Diarrhoea haemorrhagic [Unknown]
  - Nausea [Unknown]

NARRATIVE: CASE EVENT DATE: 20151127
